FAERS Safety Report 5379400-1 (Version None)
Quarter: 2007Q3

REPORT INFORMATION
  Report Type: 
  Country: None (occurrence: None)
  Receive Date: 20070703
  Receipt Date: 20070621
  Transmission Date: 20080115
  Serious: Yes (Hospitalization)
  Sender: FDA-Public Use
  Company Number: 2007S1004988

PATIENT
  Age: 82 Year
  Sex: Male
  Weight: 72.5755 kg

DRUGS (2)
  1. LEVOTHYROXINE SODIUM [Suspect]
     Indication: THYROID DISORDER
     Dosage: 50 UG;DAILY;ORAL
     Route: 048
     Dates: start: 20060601, end: 20070408
  2. GABAPENTIN [Suspect]
     Indication: NEUROPATHY
     Dosage: 600 MG;ORAL
     Route: 048

REACTIONS (12)
  - ASTHENIA [None]
  - BALANCE DISORDER [None]
  - MYALGIA [None]
  - NEUROPATHY [None]
  - PAIN IN EXTREMITY [None]
  - POOR QUALITY DRUG ADMINISTERED [None]
  - SPINAL COLUMN STENOSIS [None]
  - THERAPEUTIC PRODUCT CONTAMINATION [None]
  - TRANSIENT ISCHAEMIC ATTACK [None]
  - VIRAL INFECTION [None]
  - WALKING AID USER [None]
  - WEIGHT DECREASED [None]
